FAERS Safety Report 14064236 (Version 3)
Quarter: 2017Q4

REPORT INFORMATION
  Report Type: Spontaneous
  Country: US (occurrence: US)
  Receive Date: 20171009
  Receipt Date: 20171128
  Transmission Date: 20180321
  Serious: Yes (Other)
  Sender: FDA-Public Use
  Company Number: US-PFIZER INC-2017430345

PATIENT
  Age: 36 Year
  Sex: Female
  Weight: 58.97 kg

DRUGS (14)
  1. LYRICA [Suspect]
     Active Substance: PREGABALIN
     Dosage: 75 MG, 2X/DAY
     Route: 048
  2. LYRICA [Suspect]
     Active Substance: PREGABALIN
     Indication: SEIZURE
     Dosage: 50 MG, 1X/DAY AT NIGHT
     Route: 048
  3. DIAZEPAM. [Concomitant]
     Active Substance: DIAZEPAM
     Dosage: 5 MG, 3X/DAY
     Route: 048
  4. LYRICA [Suspect]
     Active Substance: PREGABALIN
     Indication: FIBROMYALGIA
     Dosage: 100 MG, UNK (FOR THE FIRST MONTH A HALF)
     Dates: start: 20170414
  5. PROMETHAZINE HCL [Concomitant]
     Active Substance: PROMETHAZINE HYDROCHLORIDE
     Indication: NAUSEA
     Dosage: 25 MG, AS NEEDED (EVERY 4 HOURS)
     Route: 048
  6. LYRICA [Suspect]
     Active Substance: PREGABALIN
     Indication: EPILEPSY
     Dosage: 75 MG, 2X/DAY (90 DAYS, 180 CAPSULE, REFILLS 4)
     Route: 048
  7. LYRICA [Suspect]
     Active Substance: PREGABALIN
     Dosage: 50 MG, 2X/DAY
     Route: 048
  8. ASPIRIN 81 [Concomitant]
     Active Substance: ASPIRIN
     Dosage: 81 MG, 1X/DAY
     Route: 048
  9. VALIUM [Concomitant]
     Active Substance: DIAZEPAM
     Dosage: 5 MG, 3X/DAY
  10. SULFACETAMIDE SODIUM. [Concomitant]
     Active Substance: SULFACETAMIDE SODIUM
     Dosage: 1 DF, 4X/DAY   (1 APPLICATION AT BEDTIME )
  11. KEPPRA [Concomitant]
     Active Substance: LEVETIRACETAM
     Dosage: 750 MG, 2X/DAY
     Route: 048
  12. KEPPRA [Concomitant]
     Active Substance: LEVETIRACETAM
     Dosage: 750 MG, 2X/DAY(1 AND 1/2 TABLET)
     Route: 048
  13. PERCOCET [Concomitant]
     Active Substance: ACETAMINOPHEN\OXYCODONE HYDROCHLORIDE
     Dosage: 1 DF, AS NEEDED (OXYCODONE HYDROCHLORIDE, PARACETAMOL 10-325 MG TABLET 1 TABLET AS NEEDED)
     Route: 048
  14. BACLOFEN. [Concomitant]
     Active Substance: BACLOFEN
     Indication: MUSCLE DISORDER
     Dosage: UNK, AS NEEDED (HALF TO ONE PILL THREE TIMES A DAY)
     Route: 048

REACTIONS (19)
  - Tremor [Unknown]
  - Pallor [Unknown]
  - Asthenia [Unknown]
  - Eating disorder [Unknown]
  - Vision blurred [Unknown]
  - Seizure [Not Recovered/Not Resolved]
  - Insomnia [Unknown]
  - Hypoaesthesia [Unknown]
  - Nausea [Unknown]
  - Intentional product misuse [Unknown]
  - Intentional product use issue [Unknown]
  - Hot flush [Unknown]
  - Drug withdrawal syndrome [Unknown]
  - Feeling cold [Unknown]
  - Feeding disorder [Unknown]
  - Vomiting [Unknown]
  - Condition aggravated [Not Recovered/Not Resolved]
  - Pain in extremity [Unknown]
  - Dizziness [Unknown]
